FAERS Safety Report 20561640 (Version 2)
Quarter: 2022Q1

REPORT INFORMATION
  Report Type: Spontaneous
  Country: GB (occurrence: GB)
  Receive Date: 20220307
  Receipt Date: 20220315
  Transmission Date: 20220423
  Serious: No
  Sender: FDA-Public Use
  Company Number: GB-AMGEN-GBRSP2020022745

PATIENT
  Age: 64 Year
  Sex: Female

DRUGS (2)
  1. PROLIA [Suspect]
     Active Substance: DENOSUMAB
     Indication: Osteoporosis
     Dosage: 60 MILLIGRAM, Q6MO
     Route: 065
  2. VITAMIN D NOS [Concomitant]
     Active Substance: VITAMIN D NOS
     Indication: Multiple sclerosis

REACTIONS (7)
  - Abdominal distension [Unknown]
  - Muscle atrophy [Unknown]
  - Lipoatrophy [Unknown]
  - Peripheral swelling [Unknown]
  - Decubitus ulcer [Unknown]
  - Abdominal tenderness [Unknown]
  - Apicectomy [Unknown]

NARRATIVE: CASE EVENT DATE: 20200128
